FAERS Safety Report 5189080-6 (Version None)
Quarter: 2006Q4

REPORT INFORMATION
  Report Type: 
  Country: None (occurrence: None)
  Receive Date: 20061215
  Receipt Date: 20061129
  Transmission Date: 20070319
  Serious: Yes (Other)
  Sender: FDA-Public Use
  Company Number: 2006BM000181

PATIENT
  Age: 40 Year

DRUGS (2)
  1. PREDNISOLONE [Suspect]
     Dosage: 10 MG QD
  2. ORAPRED [Suspect]

REACTIONS (2)
  - CHORIORETINOPATHY [None]
  - ISCHAEMIA [None]
